FAERS Safety Report 15722427 (Version 1)
Quarter: 2018Q4

REPORT INFORMATION
  Report Type: Spontaneous
  Country: US (occurrence: US)
  Receive Date: 20181213
  Receipt Date: 20181213
  Transmission Date: 20190205
  Serious: Yes (Life-Threatening, Disabling)
  Sender: FDA-Public Use
  Company Number: None

PATIENT
  Age: 14 Year
  Sex: Male
  Weight: 45 kg

DRUGS (1)
  1. CLINDAMYCIN 300 MG CAPSULES [Suspect]
     Active Substance: CLINDAMYCIN HYDROCHLORIDE
     Indication: ANTIBIOTIC PROPHYLAXIS
     Dosage: ?          QUANTITY:1 CAPSULE(S);?
     Route: 048
     Dates: start: 20180509, end: 20180510

REACTIONS (5)
  - Salivary hypersecretion [None]
  - Vomiting [None]
  - Dyspnoea [None]
  - Palpitations [None]
  - Drug hypersensitivity [None]

NARRATIVE: CASE EVENT DATE: 20180510
